FAERS Safety Report 5837962-1 (Version None)
Quarter: 2008Q3

REPORT INFORMATION
  Report Type: 
  Country: None (occurrence: None)
  Receive Date: 20080808
  Receipt Date: 20071217
  Transmission Date: 20090109
  Serious: No
  Sender: FDA-Public Use
  Company Number: A0700183A

PATIENT
  Sex: Female

DRUGS (4)
  1. PAXIL [Suspect]
     Indication: ANTIDEPRESSANT THERAPY
     Route: 048
     Dates: end: 20050101
  2. ZOLOFT [Suspect]
     Indication: ANTIDEPRESSANT THERAPY
     Route: 065
     Dates: start: 20050101
  3. SONATA [Suspect]
     Indication: SLEEP DISORDER
     Route: 065
     Dates: start: 20050101
  4. ALCOHOL [Concomitant]
     Dates: start: 20050201, end: 20050201

REACTIONS (5)
  - ADVERSE REACTION [None]
  - AGITATION [None]
  - CONVERSION DISORDER [None]
  - EMOTIONAL DISORDER [None]
  - ROAD TRAFFIC ACCIDENT [None]
